FAERS Safety Report 8158034-X (Version None)
Quarter: 2012Q1

REPORT INFORMATION
  Report Type: 
  Country: None (occurrence: None)
  Receive Date: 20120222
  Receipt Date: 20120215
  Transmission Date: 20120608
  Serious: Yes (Life-Threatening, Hospitalization, Disabling)
  Sender: FDA-Public Use
  Company Number: PHHY2012IT013802

PATIENT
  Age: 80 Year
  Sex: Female

DRUGS (7)
  1. TASIGNA [Suspect]
     Indication: CHRONIC MYELOID LEUKAEMIA
     Dosage: 600 MG, DAILY
     Route: 048
     Dates: start: 20110125, end: 20110126
  2. OMEPRAZOLE [Concomitant]
     Dosage: 20 MG, DAILY
     Route: 048
  3. FUROSEMIDE [Concomitant]
     Dosage: 2 DF, DAILY
  4. ORAL ANTIDIABETICS [Concomitant]
  5. RAMIPRIL [Concomitant]
     Dosage: 2 DF, DAILY
  6. BISOPROLOL [Concomitant]
     Dosage: 1 DF, DAILY
  7. SINTROM [Concomitant]

REACTIONS (1)
  - ACUTE MYOCARDIAL INFARCTION [None]
